FAERS Safety Report 8411645 (Version 3)
Quarter: 2013Q4

REPORT INFORMATION
  Report Type: Spontaneous
  Country: US (occurrence: None)
  Receive Date: 20111227
  Receipt Date: 20131226
  Transmission Date: 20140711
  Serious: Yes (Other)
  Sender: FDA-Public Use
  Company Number: PHEH2011US05453

PATIENT
  Age: 48 Year
  Sex: Female

DRUGS (1)
  1. GILENYA [Suspect]
     Indication: MULTIPLE SCLEROSIS
     Dosage: 0.5 MG, QD, ORAL, 0.5 MG EVERY OTHER DAY, ORAL
     Route: 048
     Dates: start: 20110119

REACTIONS (3)
  - White blood cell count decreased [None]
  - Incorrect dose administered [None]
  - Inappropriate schedule of drug administration [None]
